FAERS Safety Report 5161037-0 (Version None)
Quarter: 2006Q4

REPORT INFORMATION
  Report Type: 
  Country: None (occurrence: None)
  Receive Date: 20061121
  Receipt Date: 20061107
  Transmission Date: 20070319
  Serious: Yes (Hospitalization)
  Sender: FDA-Public Use
  Company Number: 2006140249

PATIENT
  Age: 19 Year
  Sex: Male

DRUGS (1)
  1. SOMATROPIN                   (SOMATROPIN) [Suspect]
     Indication: BODY HEIGHT BELOW NORMAL

REACTIONS (1)
  - JOINT DISLOCATION [None]
